APPROVED DRUG PRODUCT: IMATINIB MESYLATE
Active Ingredient: IMATINIB MESYLATE
Strength: EQ 400MG BASE
Dosage Form/Route: TABLET;ORAL
Application: A208302 | Product #002 | TE Code: AB
Applicant: SHILPA MEDICARE LTD
Approved: Jan 17, 2019 | RLD: No | RS: No | Type: RX